FAERS Safety Report 4459309-8 (Version None)
Quarter: 2004Q3

REPORT INFORMATION
  Report Type: 
  Country: None (occurrence: None)
  Receive Date: 20040922
  Receipt Date: 20040922
  Transmission Date: 20050211
  Serious: No
  Sender: FDA-Public Use
  Company Number: None

PATIENT
  Sex: Female

DRUGS (1)
  1. ALEVE [Suspect]
     Indication: HEADACHE
     Dosage: ORAL
     Route: 048
     Dates: start: 20040607, end: 20040607

REACTIONS (5)
  - BODY TEMPERATURE INCREASED [None]
  - PRURITUS GENERALISED [None]
  - RASH GENERALISED [None]
  - RESPIRATORY RATE INCREASED [None]
  - SWELLING FACE [None]
